FAERS Safety Report 5487538-3 (Version None)
Quarter: 2007Q4

REPORT INFORMATION
  Report Type: 
  Country: None (occurrence: None)
  Receive Date: 20071015
  Receipt Date: 20071001
  Transmission Date: 20080405
  Serious: Yes (Other)
  Sender: FDA-Public Use
  Company Number: GXKR2007NL08514

PATIENT
  Age: 36 Year
  Sex: Male

DRUGS (1)
  1. PAROXETINE [Suspect]
     Indication: DEPRESSION
     Dosage: 1 DF, QD, ORAL
     Route: 048
     Dates: start: 20070911

REACTIONS (3)
  - AGGRESSION [None]
  - AGITATION [None]
  - FOOD INTERACTION [None]
